FAERS Safety Report 10030242 (Version 2)
Quarter: 2014Q1

REPORT INFORMATION
  Report Type: Spontaneous
  Country: US (occurrence: US)
  Receive Date: 20140323
  Receipt Date: 20140323
  Transmission Date: 20141002
  Serious: No
  Sender: FDA-Public Use
  Company Number: US-ALLERGAN-1308126US

PATIENT
  Age: 54 Year
  Sex: Female

DRUGS (5)
  1. LATISSE 0.03% [Suspect]
     Indication: GROWTH OF EYELASHES
     Dosage: UNK
     Route: 061
     Dates: start: 201304, end: 201305
  2. LATISSE 0.03% [Suspect]
     Dosage: UNK
     Dates: start: 201006, end: 201207
  3. MURO 128                           /00075401/ [Concomitant]
     Indication: DRY EYE
     Dosage: UNK UNK, QHS
     Route: 047
     Dates: start: 201210, end: 201305
  4. SYSTANE BALANCE [Concomitant]
     Indication: DRY EYE
     Dosage: 2 GTT, UNK
     Route: 047
     Dates: start: 201305
  5. SYSTANE NIGHTTIME [Concomitant]
     Indication: DRY EYE
     Dosage: UNK UNK, QHS
     Route: 047
     Dates: start: 201305

REACTIONS (9)
  - Corneal cyst [Recovering/Resolving]
  - Blepharal pigmentation [Not Recovered/Not Resolved]
  - Corneal disorder [Recovering/Resolving]
  - Expired drug administered [Unknown]
  - Inappropriate schedule of drug administration [Unknown]
  - Wrong technique in drug usage process [Unknown]
  - Dry eye [Recovering/Resolving]
  - Ocular hyperaemia [Recovering/Resolving]
  - Eye discharge [Recovering/Resolving]
